FAERS Safety Report 15348330 (Version 1)
Quarter: 2018Q3

REPORT INFORMATION
  Report Type: Spontaneous
  Country: IT (occurrence: IT)
  Receive Date: 20180904
  Receipt Date: 20180904
  Transmission Date: 20181010
  Serious: No
  Sender: FDA-Public Use
  Company Number: IT-AKRON, INC.-2054589

PATIENT
  Age: 48 Year
  Sex: Female

DRUGS (1)
  1. LEVETIRACETAM ORAL SOLUTION [Suspect]
     Active Substance: LEVETIRACETAM
     Indication: EPILEPSY
     Route: 050

REACTIONS (1)
  - Rhabdomyolysis [Recovered/Resolved]
